FAERS Safety Report 10744601 (Version 3)
Quarter: 2015Q2

REPORT INFORMATION
  Report Type: Spontaneous
  Country: FR (occurrence: FR)
  Receive Date: 20150128
  Receipt Date: 20150505
  Transmission Date: 20150821
  Serious: Yes (Other)
  Sender: FDA-Public Use
  Company Number: FR-TEVA-536047ISR

PATIENT
  Age: 64 Year
  Sex: Female
  Weight: 54 kg

DRUGS (7)
  1. LUTENYL 3.75 MG [Suspect]
     Active Substance: NOMEGESTROL ACETATE
     Indication: HORMONE REPLACEMENT THERAPY
     Dosage: STARTED ABOOUT 10 YEARS EARLIER
     Route: 048
     Dates: start: 2010, end: 201501
  2. EZETROL [Concomitant]
     Active Substance: EZETIMIBE
     Indication: HYPERCHOLESTEROLAEMIA
     Dosage: .4286 DOSAGE FORMS DAILY; STARTED SEVERAL YEARS EARLIER
  3. ESTREVA [Suspect]
     Active Substance: ESTRADIOL
     Indication: HORMONE REPLACEMENT THERAPY
     Dosage: 1 DF 5 DAYS ON 2 DAYS OFF PER WEEK
     Route: 003
     Dates: start: 2010, end: 201501
  4. ZYMA D2 [Concomitant]
     Dosage: PERIODICALLY
  5. CRESTOR 5 [Concomitant]
     Dosage: .1429 DOSAGE FORMS DAILY;
  6. TAHOR [Concomitant]
     Active Substance: ATORVASTATIN CALCIUM
     Indication: HYPERCHOLESTEROLAEMIA
     Dosage: STARTED SEVERAL YEARS EARLIER
  7. LEVOTHYROX [Concomitant]
     Active Substance: LEVOTHYROXINE
     Indication: HYPOTHYROIDISM
     Dosage: 100 MICROGRAM DAILY;

REACTIONS (1)
  - Meningioma [Not Recovered/Not Resolved]

NARRATIVE: CASE EVENT DATE: 20150113
